FAERS Safety Report 5451412-9 (Version None)
Quarter: 2007Q3

REPORT INFORMATION
  Report Type: 
  Country: None (occurrence: None)
  Receive Date: 20070913
  Receipt Date: 20070907
  Transmission Date: 20080115
  Serious: Yes (Death)
  Sender: FDA-Public Use
  Company Number: A0681508A

PATIENT
  Age: 73 Year
  Sex: Male

DRUGS (3)
  1. SERETIDE [Suspect]
     Indication: RESPIRATORY DISORDER
     Route: 055
     Dates: start: 20070430, end: 20070728
  2. BEROTEC [Concomitant]
     Dates: start: 20070430, end: 20070728
  3. ATROVENT [Concomitant]
     Dates: start: 20070430, end: 20070728

REACTIONS (1)
  - DEATH [None]
